FAERS Safety Report 15937231 (Version 2)
Quarter: 2019Q1

REPORT INFORMATION
  Report Type: Other
  Country: BE (occurrence: BE)
  Receive Date: 20190208
  Receipt Date: 20190304
  Transmission Date: 20190417
  Serious: Yes (Other)
  Sender: FDA-Public Use
  Company Number: BE-ASPEN-GLO2019BE001031

PATIENT
  Age: 52 Year
  Sex: Male

DRUGS (22)
  1. MULTIGAM [Concomitant]
     Active Substance: HUMAN IMMUNOGLOBULIN G
     Indication: CAPILLARY LEAK SYNDROME
     Route: 042
  2. MONTELUKAST [Concomitant]
     Active Substance: MONTELUKAST SODIUM
     Indication: HYPERGAMMAGLOBULINAEMIA BENIGN MONOCLONAL
  3. CETIRIZINE [Concomitant]
     Active Substance: CETIRIZINE HYDROCHLORIDE
     Indication: HYPERGAMMAGLOBULINAEMIA BENIGN MONOCLONAL
  4. ENDOXAN [Suspect]
     Active Substance: CYCLOPHOSPHAMIDE
     Indication: HYPERGAMMAGLOBULINAEMIA BENIGN MONOCLONAL
  5. CYCLOPHOSPHAMIDE. [Suspect]
     Active Substance: CYCLOPHOSPHAMIDE
     Indication: HYPERGAMMAGLOBULINAEMIA BENIGN MONOCLONAL
  6. MULTIGAM [Concomitant]
     Active Substance: HUMAN IMMUNOGLOBULIN G
     Indication: HYPERGAMMAGLOBULINAEMIA BENIGN MONOCLONAL
  7. RAMIPRIL. [Concomitant]
     Active Substance: RAMIPRIL
     Indication: HYPERTENSION
     Dosage: 10 MG, QD
     Route: 065
  8. VELCADE [Suspect]
     Active Substance: BORTEZOMIB
     Indication: HYPERGAMMAGLOBULINAEMIA BENIGN MONOCLONAL
  9. CHOLECALCIFEROL [Concomitant]
     Active Substance: CHOLECALCIFEROL
     Indication: VITAMIN D DEFICIENCY
     Dosage: 25000 IU, 1 DOSE WEEKLY
     Route: 065
  10. MONTELUKAST [Concomitant]
     Active Substance: MONTELUKAST SODIUM
     Indication: CAPILLARY LEAK SYNDROME
     Dosage: 10 MG
     Route: 065
  11. ATORVASTATIN [Concomitant]
     Active Substance: ATORVASTATIN
     Indication: DYSLIPIDAEMIA
     Dosage: 40 MG, QD
     Route: 065
  12. DEXAMETHASONE. [Suspect]
     Active Substance: DEXAMETHASONE
     Indication: HYPERGAMMAGLOBULINAEMIA BENIGN MONOCLONAL
  13. VELCADE [Suspect]
     Active Substance: BORTEZOMIB
     Indication: CAPILLARY LEAK SYNDROME
     Dosage: CYCLICAL
     Route: 065
  14. BORTEZOMIB. [Suspect]
     Active Substance: BORTEZOMIB
     Indication: CAPILLARY LEAK SYNDROME
     Dosage: FOR 5 CYCLES
     Route: 065
  15. CYCLOPHOSPHAMIDE. [Suspect]
     Active Substance: CYCLOPHOSPHAMIDE
     Indication: CAPILLARY LEAK SYNDROME
     Dosage: FOR 5 CYCLES
     Route: 065
  16. XANTHIUM [Concomitant]
     Indication: HYPERGAMMAGLOBULINAEMIA BENIGN MONOCLONAL
  17. RANITIDINE. [Concomitant]
     Active Substance: RANITIDINE
     Indication: CAPILLARY LEAK SYNDROME
     Dosage: 300 MG
     Route: 065
  18. RANITIDINE. [Concomitant]
     Active Substance: RANITIDINE
     Indication: HYPERGAMMAGLOBULINAEMIA BENIGN MONOCLONAL
  19. CETIRIZINE [Concomitant]
     Active Substance: CETIRIZINE HYDROCHLORIDE
     Indication: CAPILLARY LEAK SYNDROME
     Dosage: 10 MG
     Route: 065
  20. DEXAMETHASONE. [Suspect]
     Active Substance: DEXAMETHASONE
     Indication: CAPILLARY LEAK SYNDROME
     Dosage: CYCLICAL
     Route: 065
  21. XANTHIUM [Concomitant]
     Indication: CAPILLARY LEAK SYNDROME
     Dosage: 400 MG
     Route: 065
  22. ENDOXAN [Suspect]
     Active Substance: CYCLOPHOSPHAMIDE
     Indication: CAPILLARY LEAK SYNDROME
     Dosage: CYCLICAL
     Route: 065

REACTIONS (6)
  - Off label use [Unknown]
  - Fatigue [Recovering/Resolving]
  - Vision blurred [Recovering/Resolving]
  - Product use in unapproved indication [Unknown]
  - Polyneuropathy [Recovering/Resolving]
  - Diabetes mellitus [Recovering/Resolving]
